APPROVED DRUG PRODUCT: CETIRIZINE HYDROCHLORIDE
Active Ingredient: CETIRIZINE HYDROCHLORIDE
Strength: 5MG/5ML
Dosage Form/Route: SOLUTION;ORAL
Application: A078398 | Product #001 | TE Code: AA
Applicant: PADAGIS US LLC
Approved: Jun 17, 2008 | RLD: No | RS: Yes | Type: RX